FAERS Safety Report 9648385 (Version 1)
Quarter: 2013Q4

REPORT INFORMATION
  Report Type: Spontaneous
  Country: GB (occurrence: GB)
  Receive Date: 20131028
  Receipt Date: 20131028
  Transmission Date: 20140711
  Serious: Yes (Life-Threatening, Other)
  Sender: FDA-Public Use
  Company Number: GB-TEVA-439099ISR

PATIENT
  Age: 65 Year
  Sex: Male
  Weight: 70 kg

DRUGS (7)
  1. BISOPROLOL [Suspect]
     Dates: start: 20121220, end: 20130210
  2. SEROXAT [Interacting]
     Indication: BIPOLAR I DISORDER
     Dosage: LONG TERM
     Dates: start: 2000
  3. SEROXAT [Interacting]
     Dosage: LONG TERM. INCREASED FROM 20MG TO 40MG
     Dates: start: 20130211
  4. ASPIRIN [Concomitant]
     Dates: start: 20121220, end: 20130319
  5. ISOSORBIDE [Concomitant]
     Dates: start: 20121220, end: 20130210
  6. SIMVASTATIN [Concomitant]
     Dates: start: 20121220, end: 20130210
  7. ZOPICLONE [Concomitant]
     Dates: start: 20121220, end: 20130210

REACTIONS (4)
  - Depression [Recovered/Resolved]
  - Suicidal ideation [Recovered/Resolved]
  - Mental disorder [Recovered/Resolved]
  - Drug interaction [Unknown]
